FAERS Safety Report 25340864 (Version 1)
Quarter: 2025Q2

REPORT INFORMATION
  Report Type: Spontaneous
  Country: CA (occurrence: CA)
  Receive Date: 20250521
  Receipt Date: 20250521
  Transmission Date: 20250716
  Serious: Yes (Other)
  Sender: CELLTRION
  Company Number: CA-CELLTRION INC.-2025CA015000

PATIENT

DRUGS (2)
  1. INFLIXIMAB [Suspect]
     Active Substance: INFLIXIMAB
     Indication: Psoriatic arthropathy
     Dosage: 120 MG, EVERY 2 WEEKS/ MAINTENANCE 120MG SC Q2WEEKS
     Route: 058
     Dates: start: 20250505
  2. ADALIMUMAB [Suspect]
     Active Substance: ADALIMUMAB
     Indication: Psoriatic arthropathy
     Dosage: 40 MG, EVERY 2 WEEKS

REACTIONS (3)
  - Psoriatic arthropathy [Unknown]
  - Loss of therapeutic response [Unknown]
  - Off label use [Unknown]
